FAERS Safety Report 26192073 (Version 1)
Quarter: 2025Q4

REPORT INFORMATION
  Report Type: Spontaneous
  Country: US (occurrence: US)
  Receive Date: 20251223
  Receipt Date: 20251223
  Transmission Date: 20260118
  Serious: Yes (Other)
  Sender: SANOFI AVENTIS
  Company Number: US-SANOFI-02757878

PATIENT
  Sex: Male

DRUGS (1)
  1. DUPIXENT [Suspect]
     Active Substance: DUPILUMAB

REACTIONS (6)
  - Loss of consciousness [Unknown]
  - Injection site urticaria [Unknown]
  - Chest pain [Unknown]
  - Pallor [Unknown]
  - Dizziness [Unknown]
  - Urticaria [Unknown]
